FAERS Safety Report 6464358-4 (Version None)
Quarter: 2009Q4

REPORT INFORMATION
  Report Type: 
  Country: None (occurrence: None)
  Receive Date: 20091201
  Receipt Date: 20091118
  Transmission Date: 20100525
  Serious: Yes (Other)
  Sender: FDA-Public Use
  Company Number: AU-ELI_LILLY_AND_COMPANY-AU200909001780

PATIENT
  Age: 37 Year
  Sex: Male

DRUGS (1)
  1. FLUOXETINE [Suspect]
     Indication: MAJOR DEPRESSION
     Dosage: 20 MG, UNK
     Dates: start: 20000101

REACTIONS (4)
  - BIPOLAR DISORDER [None]
  - MANIA [None]
  - PSYCHOTIC DISORDER [None]
  - SUICIDAL IDEATION [None]
